FAERS Safety Report 4655558-4 (Version None)
Quarter: 2005Q2

REPORT INFORMATION
  Report Type: 
  Country: None (occurrence: None)
  Receive Date: 20050505
  Receipt Date: 20050422
  Transmission Date: 20051028
  Serious: Yes (Other)
  Sender: FDA-Public Use
  Company Number: 2005064635

PATIENT
  Age: 71 Year
  Sex: Male
  Weight: 103.4201 kg

DRUGS (5)
  1. BEXTRA [Suspect]
     Indication: ARTHRITIS
     Dosage: (1 D), ORAL
     Route: 048
     Dates: start: 20040101, end: 20050101
  2. DYAZIDE [Concomitant]
  3. DILTIAZEM HYDROCHLORIDE [Concomitant]
  4. POTASSIUM ACETATE [Concomitant]
  5. IBUPROFEN [Concomitant]

REACTIONS (6)
  - ABDOMINAL DISCOMFORT [None]
  - ABDOMINAL PAIN [None]
  - CARDIAC VALVE DISEASE [None]
  - DIARRHOEA [None]
  - EXTRASYSTOLES [None]
  - PALPITATIONS [None]
